FAERS Safety Report 4382835-7 (Version None)
Quarter: 2004Q2

REPORT INFORMATION
  Report Type: 
  Country: None (occurrence: None)
  Receive Date: 20040603
  Receipt Date: 20040225
  Transmission Date: 20050107
  Serious: Yes (Other)
  Sender: FDA-Public Use
  Company Number: 200411472US

PATIENT
  Age: 25 Year
  Sex: Female

DRUGS (3)
  1. ENOXAPARIN SODIUM [Suspect]
     Indication: DEEP VEIN THROMBOSIS
     Dosage: 80 MG BID SC
     Route: 058
     Dates: start: 20021107, end: 20021126
  2. WARFARIN SODIUM [Concomitant]
  3. HEPARIN [Concomitant]

REACTIONS (2)
  - MUSCLE HAEMORRHAGE [None]
  - UMBILICAL CORD AROUND NECK [None]
